FAERS Safety Report 9570465 (Version 1)
Quarter: 2013Q3

REPORT INFORMATION
  Report Type: Spontaneous
  Country: US (occurrence: None)
  Receive Date: 20130926
  Receipt Date: 20130926
  Transmission Date: 20140515
  Serious: Yes (Disabling)
  Sender: FDA-Public Use
  Company Number: None

PATIENT
  Age: 52 Year
  Sex: Female
  Weight: 79.38 kg

DRUGS (1)
  1. LEVOFLOXACIN [Suspect]
     Indication: UPPER RESPIRATORY TRACT INFECTION
     Dosage: 1 TABLET?ONCE DAILY?TAKEN BY MOUTH
     Route: 048
     Dates: start: 20111115, end: 20131021

REACTIONS (5)
  - Arthralgia [None]
  - Arthralgia [None]
  - Arthralgia [None]
  - Rotator cuff syndrome [None]
  - Tendon disorder [None]
